FAERS Safety Report 5883053-3 (Version None)
Quarter: 2008Q3

REPORT INFORMATION
  Report Type: 
  Country: None (occurrence: None)
  Receive Date: 20080913
  Receipt Date: 20080827
  Transmission Date: 20090109
  Serious: No
  Sender: FDA-Public Use
  Company Number: US-ABBOTT-08P-163-0472850-00

PATIENT
  Sex: Female
  Weight: 120.31 kg

DRUGS (10)
  1. HUMIRA [Suspect]
     Indication: PSORIATIC ARTHROPATHY
     Route: 058
     Dates: start: 20070601, end: 20080501
  2. DULOXETINE HYDROCHLORIDE [Concomitant]
     Indication: DEPRESSION
     Route: 048
     Dates: start: 20060101
  3. NORTRIPTYLINE HCL [Concomitant]
     Indication: PAIN
     Dosage: 75 MG DAILY
     Route: 048
     Dates: start: 20060101
  4. METHOTREXATE [Concomitant]
     Indication: PSORIATIC ARTHROPATHY
     Dosage: 2.5-5 TABS EVERY WEEK
     Route: 048
     Dates: start: 20060101
  5. FOLIC ACID [Concomitant]
     Indication: PSORIATIC ARTHROPATHY
     Dosage: 1 MG DAILY
     Route: 048
     Dates: start: 20060101
  6. ZOLPIDEM TARTRATE [Concomitant]
     Indication: INSOMNIA
     Dosage: 10 MG AT BED TIME
     Route: 048
     Dates: start: 20050101
  7. TRAMADOL HCL [Concomitant]
     Indication: PAIN
     Route: 048
     Dates: start: 20050101
  8. IBUPROFEN [Concomitant]
     Indication: PAIN
     Dosage: 800 MG EVERY 6-8 HOURS
     Route: 048
  9. ENALAPRIL MALEATE [Concomitant]
     Indication: HYPERTENSION
     Route: 048
     Dates: start: 20080501
  10. CARVEDILOL [Concomitant]
     Indication: HYPERTENSION
     Route: 048
     Dates: start: 20080501

REACTIONS (4)
  - CARDIAC FAILURE [None]
  - CELLULITIS [None]
  - EJECTION FRACTION DECREASED [None]
  - OEDEMA PERIPHERAL [None]
